FAERS Safety Report 8003594 (Version 2)
Quarter: 2013Q3

REPORT INFORMATION
  Report Type: Other
  Country: JP (occurrence: JP)
  Receive Date: 20110622
  Receipt Date: 20130902
  Transmission Date: 20140515
  Serious: Yes (Other)
  Sender: FDA-Public Use
  Company Number: JP-BRISTOL-MYERS SQUIBB COMPANY-15845720

PATIENT
  Age: 72 Year
  Sex: Female

DRUGS (2)
  1. TAXOL [Suspect]
  2. CARBOPLATIN [Suspect]

REACTIONS (2)
  - Tumour lysis syndrome [Unknown]
  - Renal failure acute [Unknown]
